FAERS Safety Report 19942254 (Version 1)
Quarter: 2021Q4

REPORT INFORMATION
  Report Type: Other
  Country: BR (occurrence: BR)
  Receive Date: 20211012
  Receipt Date: 20211012
  Transmission Date: 20220303
  Serious: Yes (Other)
  Sender: FDA-Public Use
  Company Number: BR-ROCHE-2928128

PATIENT
  Age: 55 Year
  Sex: Female

DRUGS (5)
  1. OCREVUS [Suspect]
     Active Substance: OCRELIZUMAB
     Indication: Multiple sclerosis
     Dosage: 300MG/10ML
     Route: 042
     Dates: start: 202104
  2. PURAN [Concomitant]
     Active Substance: LEVOTHYROXINE SODIUM
     Indication: Hypothyroidism
     Dosage: 1 TALET IN THE MORNING FASTING
     Route: 048
     Dates: start: 20211001
  3. PREGABALIN [Concomitant]
     Active Substance: PREGABALIN
  4. BACLOFEN [Concomitant]
     Active Substance: BACLOFEN
  5. MACRODANTIN [Concomitant]
     Active Substance: NITROFURANTOIN

REACTIONS (2)
  - Urinary tract infection bacterial [Unknown]
  - Pain in extremity [Unknown]

NARRATIVE: CASE EVENT DATE: 20210922
